FAERS Safety Report 4353197-6 (Version None)
Quarter: 2004Q2

REPORT INFORMATION
  Report Type: 
  Country: None (occurrence: None)
  Receive Date: 20040503
  Receipt Date: 20040503
  Transmission Date: 20050107
  Serious: No
  Sender: FDA-Public Use
  Company Number: None

PATIENT
  Age: 45 Year
  Sex: Male
  Weight: 100.2449 kg

DRUGS (1)
  1. LACTATED RINGER'S [Suspect]
     Indication: POSTOPERATIVE CARE
     Dosage: IV
     Route: 042
     Dates: start: 20040426

REACTIONS (3)
  - BLISTER [None]
  - ERYTHEMA [None]
  - URTICARIA [None]
